FAERS Safety Report 18243524 (Version 1)
Quarter: 2020Q3

REPORT INFORMATION
  Report Type: Spontaneous
  Country: ES (occurrence: ES)
  Receive Date: 20200908
  Receipt Date: 20200908
  Transmission Date: 20201103
  Serious: Yes (Other)
  Sender: FDA-Public Use
  Company Number: ES-UCBSA-2020034680

PATIENT
  Age: 68 Year
  Sex: Male

DRUGS (3)
  1. SINEMET [Suspect]
     Active Substance: CARBIDOPA\LEVODOPA
     Indication: ON AND OFF PHENOMENON
     Dosage: LEVODOPA DOSE: 500 (NO UNITS PROVIDED), UNKNOWN
  2. NEUPRO [Suspect]
     Active Substance: ROTIGOTINE
     Indication: ON AND OFF PHENOMENON
     Dosage: UNKNOWN
  3. ONGENTYS [Suspect]
     Active Substance: OPICAPONE
     Indication: ON AND OFF PHENOMENON
     Dosage: UNKNOWN

REACTIONS (8)
  - Bradykinesia [Unknown]
  - Reduced facial expression [Unknown]
  - Dementia [Unknown]
  - Gait disturbance [Unknown]
  - Sleep disorder [Unknown]
  - Therapeutic response shortened [Unknown]
  - Product use issue [Unknown]
  - Constipation [Unknown]
